FAERS Safety Report 6540895-9 (Version None)
Quarter: 2010Q1

REPORT INFORMATION
  Report Type: 
  Country: None (occurrence: None)
  Receive Date: 20100118
  Receipt Date: 20100114
  Transmission Date: 20100710
  Serious: Yes (Death, Other)
  Sender: FDA-Public Use
  Company Number: PHEH2010US00607

PATIENT
  Sex: Female

DRUGS (19)
  1. EXJADE [Suspect]
     Indication: IRON METABOLISM DISORDER
     Dosage: 1000 MG, QD
     Route: 048
     Dates: start: 20090318
  2. EXJADE [Suspect]
     Indication: IRON OVERLOAD
  3. OMEPRAZOLE [Concomitant]
     Indication: GASTROOESOPHAGEAL REFLUX DISEASE
     Dosage: 20 MG, BID
  4. CREON [Concomitant]
     Indication: MALABSORPTION
  5. CENTRUM SILVER [Concomitant]
  6. VITAMIN C [Concomitant]
  7. ZYRTEC [Concomitant]
  8. SENOKOT                                 /USA/ [Concomitant]
  9. COMPAZINE [Concomitant]
     Dosage: UNK
  10. MECLIZINE [Concomitant]
     Dosage: UNK
  11. ROBITUSSIN COUGH DROPS [Concomitant]
  12. KLOR-CON [Concomitant]
     Dosage: 20 MEQ, QD
  13. AMBIEN [Concomitant]
     Dosage: 5 MG, QHS
  14. LOPERAMIDE [Concomitant]
     Dosage: 2 MG, Q LOOSE BM
  15. LOVENOX [Concomitant]
     Indication: DEEP VEIN THROMBOSIS
     Dosage: 60 MG, QD
  16. ATIVAN [Concomitant]
     Dosage: 1 MG, Q6H PRN
  17. LEXAPRO [Concomitant]
     Indication: DEPRESSION
     Dosage: 5 MG, QD
  18. DACOGEN [Concomitant]
     Dosage: UNK
     Dates: start: 20090323, end: 20090327
  19. DACOGEN [Concomitant]
     Dosage: UNK
     Dates: start: 20090501, end: 20090601

REACTIONS (20)
  - ANAEMIA MACROCYTIC [None]
  - BRONCHITIS [None]
  - CONTUSION [None]
  - COUGH [None]
  - DEATH [None]
  - DECREASED APPETITE [None]
  - DEHYDRATION [None]
  - DIVERTICULITIS [None]
  - FATIGUE [None]
  - HEART RATE INCREASED [None]
  - HERPES ZOSTER [None]
  - HYPERSENSITIVITY [None]
  - MUSCULOSKELETAL DISCOMFORT [None]
  - NAUSEA [None]
  - ONYCHOMYCOSIS [None]
  - PELVIC MASS [None]
  - POSTNASAL DRIP [None]
  - RENAL FAILURE [None]
  - SPUTUM PURULENT [None]
  - WEIGHT DECREASED [None]
